FAERS Safety Report 8461344-X (Version None)
Quarter: 2012Q2

REPORT INFORMATION
  Report Type: 
  Country: None (occurrence: None)
  Receive Date: 20120625
  Receipt Date: 20120615
  Transmission Date: 20120825
  Serious: Yes (Hospitalization)
  Sender: FDA-Public Use
  Company Number: FR-JNJFOC-20120609983

PATIENT
  Sex: Male

DRUGS (8)
  1. HALDOL [Suspect]
     Indication: AGITATION
     Dosage: 3 DROPS IN THE MORNING AND AT MIDTIME AND 6 DROPS IN THE EVENING IF AGITATION OCCURS
     Route: 048
     Dates: start: 20120223, end: 20120328
  2. BISOPROLOL FUMARATE [Concomitant]
     Indication: PRODUCT USED FOR UNKNOWN INDICATION
     Route: 065
  3. HALDOL [Suspect]
     Indication: PHLEBITIS
     Dosage: 3 DROPS IN THE MORNING AND AT MIDTIME AND 6 DROPS IN THE EVENING IF AGITATION OCCURS
     Route: 048
     Dates: start: 20120223, end: 20120328
  4. TIAPRIDAL [Suspect]
     Indication: PRODUCT USED FOR UNKNOWN INDICATION
     Dosage: IN THE EVENING
     Route: 048
     Dates: start: 20120227
  5. FRAGMIN [Concomitant]
     Indication: PRODUCT USED FOR UNKNOWN INDICATION
     Dosage: 5000 IU ANTI XA/0.2 ML
     Route: 065
  6. HALDOL [Suspect]
     Indication: AGGRESSION
     Dosage: 3 DROPS IN THE MORNING AND AT MIDTIME AND 6 DROPS IN THE EVENING IF AGITATION OCCURS
     Route: 048
     Dates: start: 20120223, end: 20120328
  7. ATARAX [Suspect]
     Indication: AGITATION
     Dosage: IN THE EVENING
     Route: 048
  8. ATARAX [Suspect]
     Indication: ANXIETY
     Dosage: IN THE EVENING
     Route: 048

REACTIONS (3)
  - DEHYDRATION [None]
  - RENAL FAILURE ACUTE [None]
  - URINARY RETENTION [None]
